FAERS Safety Report 6955149-6 (Version None)
Quarter: 2010Q3

REPORT INFORMATION
  Report Type: 
  Country: None (occurrence: None)
  Receive Date: 20100830
  Receipt Date: 20100819
  Transmission Date: 20110219
  Serious: Yes (Hospitalization, Other)
  Sender: FDA-Public Use
  Company Number: GB-ASTRAZENECA-2009SE27414

PATIENT
  Age: 14706 Day
  Sex: Female

DRUGS (20)
  1. MEROPENEM [Suspect]
     Indication: INFECTION
     Route: 042
     Dates: start: 20090918, end: 20090922
  2. MEROPENEM [Suspect]
     Indication: NEUTROPENIC SEPSIS
     Route: 042
     Dates: start: 20090918, end: 20090922
  3. MEROPENEM [Suspect]
     Indication: ANTIBIOTIC PROPHYLAXIS
     Route: 042
     Dates: start: 20090918, end: 20090922
  4. MEROPENEM [Suspect]
     Route: 042
     Dates: start: 20090923, end: 20090928
  5. MEROPENEM [Suspect]
     Route: 042
     Dates: start: 20090923, end: 20090928
  6. MEROPENEM [Suspect]
     Route: 042
     Dates: start: 20090923, end: 20090928
  7. MEROPENEM [Suspect]
     Route: 042
     Dates: start: 20091004, end: 20091012
  8. MEROPENEM [Suspect]
     Route: 042
     Dates: start: 20091004, end: 20091012
  9. MEROPENEM [Suspect]
     Route: 042
     Dates: start: 20091004, end: 20091012
  10. CYCLOPHOSPHAMIDE [Suspect]
     Indication: PANCREATIC CARCINOMA METASTATIC
     Route: 042
     Dates: start: 20090916, end: 20090916
  11. CYCLOPHOSPHAMIDE [Suspect]
     Route: 042
     Dates: start: 20090917, end: 20090917
  12. FLUDARABINE [Suspect]
     Indication: PANCREATIC CARCINOMA METASTATIC
     Route: 042
     Dates: start: 20090918, end: 20090922
  13. TEICOPLANIN [Suspect]
     Indication: ANTIBIOTIC PROPHYLAXIS
     Route: 042
     Dates: start: 20090918, end: 20090919
  14. TEICOPLANIN [Suspect]
     Indication: NEUTROPENIC SEPSIS
     Route: 042
     Dates: start: 20090918, end: 20090919
  15. TEICOPLANIN [Suspect]
     Indication: INFECTION
     Route: 042
     Dates: start: 20090918, end: 20090919
  16. TEICOPLANIN [Suspect]
     Route: 042
     Dates: start: 20090923, end: 20090928
  17. TEICOPLANIN [Suspect]
     Route: 042
     Dates: start: 20090923, end: 20090928
  18. TEICOPLANIN [Suspect]
     Route: 042
     Dates: start: 20090923, end: 20090928
  19. MFEZ T CELL [Suspect]
     Indication: PANCREATIC CARCINOMA METASTATIC
     Route: 042
     Dates: start: 20090923, end: 20090923
  20. PROLEUKIN [Suspect]
     Indication: PANCREATIC CARCINOMA METASTATIC
     Dosage: 45 DECREASED INCREMENTALLY TO 22.5 MIU
     Route: 042
     Dates: start: 20090923, end: 20090926

REACTIONS (4)
  - BLOOD BILIRUBIN INCREASED [None]
  - CLOSTRIDIUM DIFFICILE COLITIS [None]
  - NEUTROPENIC SEPSIS [None]
  - PLATELET COUNT DECREASED [None]
